FAERS Safety Report 7114749-3 (Version None)
Quarter: 2010Q4

REPORT INFORMATION
  Report Type: 
  Country: None (occurrence: None)
  Receive Date: 20101122
  Receipt Date: 20101110
  Transmission Date: 20110411
  Serious: No
  Sender: FDA-Public Use
  Company Number: US-BIOGENIDEC-2010BI029462

PATIENT
  Sex: Female

DRUGS (10)
  1. TYSABRI [Suspect]
     Indication: MULTIPLE SCLEROSIS
     Route: 042
     Dates: start: 20081216
  2. ADVAIR DISKUS 100/50 [Concomitant]
     Indication: ASTHMA
  3. NASACORT [Concomitant]
     Indication: ASTHMA
  4. VESICARE [Concomitant]
     Indication: BLADDER DISORDER
  5. VESICARE [Concomitant]
     Indication: URINARY INCONTINENCE
  6. STEROIDS [NOS] [Concomitant]
     Dates: start: 20060101
  7. METOPROLOL TARTRATE [Concomitant]
     Indication: HYPERTENSION
     Dates: start: 20070101
  8. WELCOL [NOS] [Concomitant]
     Indication: BLOOD CHOLESTEROL INCREASED
     Dates: start: 20070101
  9. TRICOR [Concomitant]
     Indication: BLOOD CHOLESTEROL INCREASED
  10. ZEDIA [NOS] (HIGH CHOLESTEROL) [Concomitant]
     Indication: BLOOD CHOLESTEROL INCREASED

REACTIONS (21)
  - APHAGIA [None]
  - ARTHRALGIA [None]
  - DECREASED APPETITE [None]
  - DIABETIC NEUROPATHY [None]
  - DIARRHOEA [None]
  - DYSPHAGIA [None]
  - FATIGUE [None]
  - HAEMOLYTIC ANAEMIA [None]
  - LIVER FUNCTION TEST ABNORMAL [None]
  - MULTIPLE SCLEROSIS RELAPSE [None]
  - MUSCLE SPASMS [None]
  - MUSCULOSKELETAL DISORDER [None]
  - PAIN [None]
  - PAIN OF SKIN [None]
  - PLATELET COUNT DECREASED [None]
  - SOMNOLENCE [None]
  - STRESS [None]
  - WEIGHT DECREASED [None]
  - WEIGHT INCREASED [None]
  - WHITE BLOOD CELL COUNT DECREASED [None]
  - WHITE BLOOD CELL COUNT INCREASED [None]
